FAERS Safety Report 9202615 (Version 2)
Quarter: 2013Q2

REPORT INFORMATION
  Report Type: Report from Study
  Country: BR (occurrence: BR)
  Receive Date: 20130401
  Receipt Date: 20130419
  Transmission Date: 20140414
  Serious: Yes (Hospitalization, Other)
  Sender: FDA-Public Use
  Company Number: BR-ABBOTT-13P-020-1070624-00

PATIENT
  Age: 44 Year
  Sex: Female
  Weight: 72 kg

DRUGS (13)
  1. HUMIRA [Suspect]
     Indication: RHEUMATOID ARTHRITIS
     Route: 058
     Dates: start: 201301, end: 20130315
  2. PREDNISONE [Concomitant]
     Indication: RHEUMATOID ARTHRITIS
     Dosage: 1 TABLET AND HALF PER DAY
     Route: 048
     Dates: start: 1997, end: 20130328
  3. PREDNISONE [Concomitant]
     Dates: start: 20130409
  4. OMEPRAZOLE [Concomitant]
     Indication: GASTRIC DISORDER
     Dates: start: 2011, end: 20130328
  5. OMEPRAZOLE [Concomitant]
     Dates: start: 20130409
  6. METHOTREXATE [Concomitant]
     Indication: RHEUMATOID ARTHRITIS
     Dosage: 4 TABLETS PER DAY
     Route: 048
     Dates: start: 2011, end: 20130328
  7. METHOTREXATE [Concomitant]
     Dates: start: 20130409
  8. ALENDRONATE SODIUM [Concomitant]
     Indication: OSTEOPOROSIS
     Route: 048
     Dates: start: 201301
  9. LOSARTAN [Concomitant]
     Indication: BLOOD PRESSURE
     Route: 048
     Dates: start: 201302
  10. IBANDRONATE SODIUM (OSTEOBAN) [Concomitant]
     Indication: PRODUCT USED FOR UNKNOWN INDICATION
     Dates: end: 20130328
  11. IBANDRONATE SODIUM (OSTEOBAN) [Concomitant]
     Dates: start: 20130409
  12. REUQUINOL [Concomitant]
     Indication: PRODUCT USED FOR UNKNOWN INDICATION
     Dates: end: 201301
  13. REUQUINOL [Concomitant]
     Dates: start: 20130409

REACTIONS (5)
  - Renal failure [Not Recovered/Not Resolved]
  - Influenza [Recovered/Resolved]
  - Hypertension [Recovering/Resolving]
  - Pneumonia [Recovered/Resolved]
  - Pulmonary embolism [Recovered/Resolved]
